FAERS Safety Report 22623951 (Version 1)
Quarter: 2023Q2

REPORT INFORMATION
  Report Type: Spontaneous
  Country: US (occurrence: US)
  Receive Date: 20230621
  Receipt Date: 20230621
  Transmission Date: 20230721
  Serious: No
  Sender: FDA-Public Use
  Company Number: US-BRISTOL-MYERS SQUIBB COMPANY-2023-085649

PATIENT
  Age: 65 Year
  Sex: Female

DRUGS (2)
  1. DASATINIB [Suspect]
     Active Substance: DASATINIB
     Indication: Chronic myeloid leukaemia
     Route: 048
  2. DASATINIB [Suspect]
     Active Substance: DASATINIB
     Route: 048

REACTIONS (2)
  - Anxiety [Recovering/Resolving]
  - Blood pressure increased [Recovered/Resolved]
